FAERS Safety Report 5558289-1 (Version None)
Quarter: 2007Q4

REPORT INFORMATION
  Report Type: 
  Country: None (occurrence: None)
  Receive Date: 20071130
  Receipt Date: 20070907
  Transmission Date: 20080405
  Serious: No
  Sender: FDA-Public Use
  Company Number: US200709001496

PATIENT
  Age: 75 Year
  Sex: Male
  Weight: 86.6 kg

DRUGS (5)
  1. BYETTA [Suspect]
     Indication: TYPE 2 DIABETES MELLITUS
     Dosage: 5 UG, 2/D, SUBCUTANEOUS; 10 UG, 2/D, SUBCUTANEOUS
     Route: 058
     Dates: start: 20070501, end: 20070601
  2. BYETTA [Suspect]
     Indication: TYPE 2 DIABETES MELLITUS
     Dosage: 5 UG, 2/D, SUBCUTANEOUS; 10 UG, 2/D, SUBCUTANEOUS
     Route: 058
     Dates: start: 20070601
  3. METFORMIN HCL [Concomitant]
  4. AVANDIA [Concomitant]
  5. GLIPIZIDE [Concomitant]

REACTIONS (9)
  - ANOREXIA [None]
  - BLOOD GLUCOSE INCREASED [None]
  - DIZZINESS [None]
  - DRUG EFFECT DECREASED [None]
  - FEELING ABNORMAL [None]
  - NAUSEA [None]
  - NERVOUSNESS [None]
  - TREMOR [None]
  - WEIGHT DECREASED [None]
